FAERS Safety Report 9379730 (Version 5)
Quarter: 2013Q3

REPORT INFORMATION
  Report Type: Report from Study
  Country: DE (occurrence: DE)
  Receive Date: 20130702
  Receipt Date: 20130829
  Transmission Date: 20140515
  Serious: Yes (Hospitalization)
  Sender: FDA-Public Use
  Company Number: DE-JNJFOC-20130615498

PATIENT
  Age: 17 Year
  Sex: Female
  Weight: 44.5 kg

DRUGS (2)
  1. REMICADE [Suspect]
     Indication: CROHN^S DISEASE
     Route: 042
     Dates: start: 20060704
  2. HUMIRA [Concomitant]
     Route: 065
     Dates: start: 20120910

REACTIONS (2)
  - Anal fistula [Recovered/Resolved with Sequelae]
  - Anal abscess [Recovered/Resolved with Sequelae]
